FAERS Safety Report 25582165 (Version 1)
Quarter: 2025Q3

REPORT INFORMATION
  Report Type: Spontaneous
  Country: US (occurrence: US)
  Receive Date: 20250719
  Receipt Date: 20250719
  Transmission Date: 20251020
  Serious: No
  Sender: MERCK SHARP & DOHME LLC
  Company Number: US-009507513-2300750

PATIENT
  Sex: Female
  Weight: 56.7 kg

DRUGS (11)
  1. SOTATERCEPT [Suspect]
     Active Substance: SOTATERCEPT
     Indication: Product used for unknown indication
  2. SOTATERCEPT [Suspect]
     Active Substance: SOTATERCEPT
  3. SOTATERCEPT [Suspect]
     Active Substance: SOTATERCEPT
  4. SOTATERCEPT [Suspect]
     Active Substance: SOTATERCEPT
  5. Loreev xr (Lorazepam) [Concomitant]
  6. ACTEMRA [Concomitant]
     Active Substance: TOCILIZUMAB
  7. ELIQUIS [Concomitant]
     Active Substance: APIXABAN
  8. NEXIUM [Concomitant]
     Active Substance: ESOMEPRAZOLE MAGNESIUM
  9. ADCIRCA [Concomitant]
     Active Substance: TADALAFIL
  10. AMBRISENTAN [Concomitant]
     Active Substance: AMBRISENTAN
  11. TYVASO DPI [Suspect]
     Active Substance: TREPROSTINIL
     Indication: Pulmonary arterial hypertension
     Route: 055
     Dates: start: 20230814

REACTIONS (1)
  - Illness [Unknown]
